FAERS Safety Report 24890031 (Version 1)
Quarter: 2025Q1

REPORT INFORMATION
  Report Type: Spontaneous
  Country: US (occurrence: US)
  Receive Date: 20250127
  Receipt Date: 20250127
  Transmission Date: 20250409
  Serious: Yes (Death)
  Sender: ROCHE
  Company Number: US-ROCHE-10000190692

PATIENT
  Age: 80 Year
  Sex: Female

DRUGS (2)
  1. COTELLIC [Suspect]
     Active Substance: COBIMETINIB FUMARATE
     Indication: Skin cancer
     Dosage: ON DAY 1 TO DAY 28 OF EACH TREATMENT DRUG CYCLE
     Route: 048
     Dates: start: 202310
  2. ZELBORAF [Suspect]
     Active Substance: VEMURAFENIB
     Indication: Skin cancer
     Route: 048

REACTIONS (1)
  - Neoplasm malignant [Fatal]

NARRATIVE: CASE EVENT DATE: 20241125
